FAERS Safety Report 17489368 (Version 1)
Quarter: 2020Q1

REPORT INFORMATION
  Report Type: Spontaneous
  Country: US (occurrence: US)
  Receive Date: 20200303
  Receipt Date: 20200303
  Transmission Date: 20200409
  Serious: Yes (Other)
  Sender: FDA-Public Use
  Company Number: US-ENDO PHARMACEUTICALS INC-2020-001827

PATIENT
  Sex: Female
  Weight: 86.18 kg

DRUGS (4)
  1. MYFORTIC [Concomitant]
     Active Substance: MYCOPHENOLATE SODIUM
     Indication: TRANSPLANT REJECTION
     Dosage: 2 (360MG) TABLETS, DAILY
     Route: 065
  2. RAPAMUNE [Concomitant]
     Active Substance: SIROLIMUS
     Indication: RENAL TRANSPLANT
     Dosage: 10-12 MG, DAILY (PENDING ON HER CREATININE LEVELS)
     Route: 048
     Dates: start: 2010
  3. PREDNISONE. [Suspect]
     Active Substance: PREDNISONE
     Dosage: 5 MG, DAILY
     Route: 065
  4. PREDNISONE. [Suspect]
     Active Substance: PREDNISONE
     Indication: TRANSPLANT REJECTION
     Dosage: 15000 MG, DAILY FOR FOUR DAYS
     Route: 065
     Dates: start: 2010

REACTIONS (4)
  - Herpes virus infection [Not Recovered/Not Resolved]
  - Off label use [Not Recovered/Not Resolved]
  - Tooth erosion [Unknown]
  - Skin cancer [Not Recovered/Not Resolved]

NARRATIVE: CASE EVENT DATE: 2010
